FAERS Safety Report 10236637 (Version 2)
Quarter: 2014Q3

REPORT INFORMATION
  Report Type: Spontaneous
  Country: IT (occurrence: IT)
  Receive Date: 20140613
  Receipt Date: 20140718
  Transmission Date: 20150326
  Serious: Yes (Other)
  Sender: FDA-Public Use
  Company Number: PHHY2014IT068810

PATIENT
  Age: 84 Year
  Sex: Female

DRUGS (3)
  1. FUROSEMIDE. [Interacting]
     Active Substance: FUROSEMIDE
     Dosage: 180 MG, QD
     Route: 042
     Dates: start: 20140503, end: 20140511
  2. FUROSEMIDE. [Interacting]
     Active Substance: FUROSEMIDE
     Dosage: 125 MG, DAILY
     Route: 042
  3. DIGOXIN. [Suspect]
     Active Substance: DIGOXIN
     Indication: CARDIAC FAILURE
     Dosage: 125 UG, QD
     Dates: start: 20140101, end: 20140517

REACTIONS (3)
  - Toxicity to various agents [Recovered/Resolved]
  - Tremor [Recovered/Resolved]
  - Sopor [Recovered/Resolved]

NARRATIVE: CASE EVENT DATE: 20140516
